FAERS Safety Report 5787384-7 (Version None)
Quarter: 2008Q2

REPORT INFORMATION
  Report Type: 
  Country: None (occurrence: None)
  Receive Date: 20080625
  Receipt Date: 20080625
  Transmission Date: 20081010
  Serious: No
  Sender: FDA-Public Use
  Company Number: None

PATIENT
  Age: 83 Year
  Sex: Female
  Weight: 65 kg

DRUGS (4)
  1. HEPARIN [Suspect]
     Indication: HIP ARTHROPLASTY
     Dosage: 5000 UNITS Q8H SQ 2 DOSES TOTAL
     Route: 058
     Dates: start: 20080207
  2. HEPARIN [Suspect]
     Indication: THROMBOSIS PROPHYLAXIS
     Dosage: 5000 UNITS Q8H SQ 2 DOSES TOTAL
     Route: 058
     Dates: start: 20080207
  3. HEPARIN [Suspect]
     Indication: HIP ARTHROPLASTY
     Dosage: 5000 UNITS Q8H SQ 2 DOSES TOTAL
     Route: 058
     Dates: start: 20080208
  4. HEPARIN [Suspect]
     Indication: THROMBOSIS PROPHYLAXIS
     Dosage: 5000 UNITS Q8H SQ 2 DOSES TOTAL
     Route: 058
     Dates: start: 20080208

REACTIONS (1)
  - HEPARIN-INDUCED THROMBOCYTOPENIA [None]
